FAERS Safety Report 17944549 (Version 1)
Quarter: 2020Q2

REPORT INFORMATION
  Report Type: Spontaneous
  Country: AU (occurrence: AU)
  Receive Date: 20200625
  Receipt Date: 20200625
  Transmission Date: 20200714
  Serious: Yes (Hospitalization)
  Sender: FDA-Public Use
  Company Number: AU-MYLANLABS-2020M1058310

PATIENT
  Age: 32 Year
  Sex: Male

DRUGS (3)
  1. CISPLATIN. [Suspect]
     Active Substance: CISPLATIN
     Indication: TESTICULAR GERM CELL TUMOUR
     Dosage: IN A 21-DAY CYCLE ON DAYS 1-5 (AS A PART OF BEP REGIMEN)
     Route: 065
  2. BLEOMYCIN [Suspect]
     Active Substance: BLEOMYCIN SULFATE
     Indication: TESTICULAR GERM CELL TUMOUR
     Dosage: 30000 INTERNATIONAL UNIT, IN A 21-DAY CYCLE ON DAYS 1, 8 AND 15 (AS A PART OF BEP REGIMEN)
     Route: 065
  3. ETOPOSIDE. [Suspect]
     Active Substance: ETOPOSIDE
     Indication: TESTICULAR GERM CELL TUMOUR
     Dosage: 100 MILLIGRAM/SQ. METER, IN A 21-DAY CYCLE ON DAYS 1-5 (AS A PART OF BEP REGIMEN)
     Route: 065

REACTIONS (7)
  - Nervous system disorder [Not Recovered/Not Resolved]
  - Hemianopia homonymous [Unknown]
  - Impaired quality of life [Not Recovered/Not Resolved]
  - Gliosis [Not Recovered/Not Resolved]
  - Ischaemic stroke [Recovering/Resolving]
  - Cerebral disorder [Recovering/Resolving]
  - Haemorrhagic transformation stroke [Not Recovered/Not Resolved]
